FAERS Safety Report 10094350 (Version 1)
Quarter: 2014Q2

REPORT INFORMATION
  Report Type: Spontaneous
  Country: FR (occurrence: FR)
  Receive Date: 20140422
  Receipt Date: 20140422
  Transmission Date: 20141212
  Serious: Yes (Hospitalization)
  Sender: FDA-Public Use
  Company Number: FR-ASTRAZENECA-2014SE26443

PATIENT
  Age: 20607 Day
  Sex: Male

DRUGS (19)
  1. XEROQUEL [Suspect]
     Route: 048
  2. DEPAKOTE [Suspect]
     Route: 048
     Dates: start: 20140306
  3. LEPTICUR [Suspect]
     Route: 048
     Dates: start: 20140319
  4. TERCIAN [Suspect]
     Route: 048
     Dates: start: 20140311, end: 20140313
  5. TERCIAN [Suspect]
     Route: 048
     Dates: start: 20140313, end: 20140322
  6. TERCIAN [Suspect]
     Route: 048
     Dates: start: 20140322, end: 20140325
  7. TERCIAN [Suspect]
     Route: 048
     Dates: start: 20140325, end: 20140401
  8. TERCIAN [Suspect]
     Route: 048
     Dates: start: 20140401, end: 20140401
  9. LYSANXIA [Suspect]
     Route: 048
     Dates: end: 20140309
  10. LYSANXIA [Suspect]
     Route: 048
     Dates: start: 20140309
  11. ZOPICLONE [Suspect]
     Route: 048
     Dates: end: 20140310
  12. ZOPICLONE [Suspect]
     Route: 048
     Dates: start: 20140310, end: 20140331
  13. ZOPICLONE [Suspect]
     Route: 048
     Dates: start: 20140331
  14. LOXAPAC [Suspect]
     Dosage: PROGRESSIVE DECREASE OF DOSES SINCE 24-MAR-2014
     Route: 048
  15. THERALENE [Suspect]
     Route: 048
     Dates: end: 20140310
  16. THERALENE [Suspect]
     Route: 048
     Dates: start: 20140310, end: 20140331
  17. THERALENE [Suspect]
     Route: 048
     Dates: start: 20140331, end: 20140401
  18. THERALENE [Suspect]
     Route: 048
     Dates: start: 20140401, end: 20140401
  19. THERALENE [Suspect]
     Route: 048
     Dates: start: 20140402

REACTIONS (3)
  - Confusional state [Not Recovered/Not Resolved]
  - Disorientation [Not Recovered/Not Resolved]
  - Amnestic disorder [Not Recovered/Not Resolved]
